FAERS Safety Report 17169346 (Version 2)
Quarter: 2020Q4

REPORT INFORMATION
  Report Type: Spontaneous
  Country: CA (occurrence: CA)
  Receive Date: 20191218
  Receipt Date: 20201204
  Transmission Date: 20210113
  Serious: Yes (Other)
  Sender: FDA-Public Use
  Company Number: CA-PFIZER INC-2019530568

PATIENT
  Age: 58 Year
  Sex: Female
  Weight: 97.51 kg

DRUGS (7)
  1. PAXIL [Concomitant]
     Active Substance: PAROXETINE HYDROCHLORIDE
     Dosage: 10 MG
  2. METHOTREXATE SODIUM. [Suspect]
     Active Substance: METHOTREXATE SODIUM
     Dosage: 15 MG, UNK
  3. INFLECTRA [Concomitant]
     Active Substance: INFLIXIMAB-DYYB
     Indication: CROHN^S DISEASE
     Dosage: 500 MG, CYCLIC (EVERY Q WEEK 0, 2, 6 THEN EVERY 8 WEEKS)
     Route: 042
     Dates: start: 20200210
  4. ASA [Concomitant]
     Active Substance: ASPIRIN
     Dosage: UNK
  5. LEUCOVORIN [FOLINIC ACID] [Concomitant]
     Active Substance: LEUCOVORIN
     Dosage: 5 MG, UNK
  6. ATORVASTATIN [Concomitant]
     Active Substance: ATORVASTATIN
     Dosage: UNK
  7. ENTYVIO [Concomitant]
     Active Substance: VEDOLIZUMAB
     Dosage: 3 MG, UNK

REACTIONS (22)
  - Abdominal pain [Unknown]
  - Diverticulum intestinal [Unknown]
  - Alanine aminotransferase increased [Unknown]
  - Blood bilirubin increased [Unknown]
  - Increased appetite [Unknown]
  - Cholelithiasis [Unknown]
  - Nausea [Unknown]
  - Fatigue [Not Recovered/Not Resolved]
  - Haemoglobin decreased [Unknown]
  - Faecal calprotectin increased [Unknown]
  - Biliary colic [Unknown]
  - Haemorrhoids [Unknown]
  - Large intestine polyp [Unknown]
  - Weight increased [Unknown]
  - Frequent bowel movements [Unknown]
  - Incisional hernia [Unknown]
  - Arthralgia [Not Recovered/Not Resolved]
  - Ulcer [Unknown]
  - Proctalgia [Unknown]
  - Eating disorder [Unknown]
  - Abdominal distension [Unknown]
  - Disturbance in attention [Unknown]

NARRATIVE: CASE EVENT DATE: 20191203
